FAERS Safety Report 7497930-3 (Version None)
Quarter: 2011Q2

REPORT INFORMATION
  Report Type: 
  Country: None (occurrence: None)
  Receive Date: 20110524
  Receipt Date: 20110513
  Transmission Date: 20111010
  Serious: Yes (Hospitalization)
  Sender: FDA-Public Use
  Company Number: US-BIOGENIDEC-2011BI007359

PATIENT
  Age: 58 Year
  Sex: Female

DRUGS (2)
  1. AVONEX [Suspect]
     Route: 030
  2. AVONEX [Suspect]
     Indication: MULTIPLE SCLEROSIS
     Route: 030
     Dates: start: 20010224

REACTIONS (10)
  - BACK PAIN [None]
  - ARTHRALGIA [None]
  - UPPER GASTROINTESTINAL HAEMORRHAGE [None]
  - FEELING COLD [None]
  - DISLOCATION OF VERTEBRA [None]
  - OPTIC NEURITIS [None]
  - ARTHRITIS [None]
  - NAUSEA [None]
  - MIGRAINE [None]
  - CHILLS [None]
